FAERS Safety Report 21243333 (Version 3)
Quarter: 2022Q4

REPORT INFORMATION
  Report Type: Spontaneous
  Country: US (occurrence: US)
  Receive Date: 20220823
  Receipt Date: 20221115
  Transmission Date: 20230113
  Serious: No
  Sender: FDA-Public Use
  Company Number: US-Blueprint Medicines Corporation-367

PATIENT
  Sex: Female

DRUGS (1)
  1. AYVAKIT [Suspect]
     Active Substance: AVAPRITINIB
     Indication: Haematopoietic neoplasm
     Route: 048
     Dates: start: 20210629

REACTIONS (16)
  - Gastric disorder [Unknown]
  - Myalgia [Unknown]
  - Ear disorder [Unknown]
  - Weight decreased [Unknown]
  - Platelet count increased [Unknown]
  - Vitamin B12 abnormal [Unknown]
  - Decreased appetite [Unknown]
  - Arthralgia [Unknown]
  - Abdominal pain [Unknown]
  - Swelling face [Unknown]
  - Periorbital swelling [Unknown]
  - Dizziness [Unknown]
  - Fatigue [Unknown]
  - Asthenia [Unknown]
  - COVID-19 [Unknown]
  - Product dose omission issue [Unknown]
